FAERS Safety Report 15567791 (Version 1)
Quarter: 2018Q4

REPORT INFORMATION
  Report Type: Spontaneous
  Country: US (occurrence: US)
  Receive Date: 20181030
  Receipt Date: 20181030
  Transmission Date: 20190205
  Serious: No
  Sender: FDA-Public Use
  Company Number: US-RISING PHARMACEUTICALS, INC.-2018RIS00396

PATIENT
  Sex: Female
  Weight: 99.77 kg

DRUGS (2)
  1. CROMOLYN SODIUM. [Suspect]
     Active Substance: CROMOLYN SODIUM
     Dosage: 2 AMPULES, 4X/DAY
     Route: 048
     Dates: start: 2014
  2. KETOTIFEN [Concomitant]
     Active Substance: KETOTIFEN

REACTIONS (4)
  - Parosmia [Not Recovered/Not Resolved]
  - Drug ineffective [Not Recovered/Not Resolved]
  - Abdominal distension [Recovered/Resolved]
  - Abdominal discomfort [Not Recovered/Not Resolved]
